FAERS Safety Report 15120967 (Version 1)
Quarter: 2018Q3

REPORT INFORMATION
  Report Type: Spontaneous
  Country: US (occurrence: US)
  Receive Date: 20180709
  Receipt Date: 20180709
  Transmission Date: 20181010
  Serious: No
  Sender: FDA-Public Use
  Company Number: US-SA-2018SA178019

PATIENT
  Age: 37 Year
  Sex: Female

DRUGS (7)
  1. DUPIXENT [Suspect]
     Active Substance: DUPILUMAB
     Indication: DERMATITIS ATOPIC
     Dosage: UNK UNK, QOW
     Route: 058
     Dates: start: 20180420
  2. KETOCONAZOLE. [Concomitant]
     Active Substance: KETOCONAZOLE
  3. AMMONIUM LACTATE. [Concomitant]
     Active Substance: AMMONIUM LACTATE
  4. ELIDEL [Concomitant]
     Active Substance: PIMECROLIMUS
  5. EPICERAM [Concomitant]
     Active Substance: DEVICE
  6. PROVENTIL HFA [SALBUTAMOL SULFATE] [Concomitant]
  7. DESONIDE. [Concomitant]
     Active Substance: DESONIDE

REACTIONS (1)
  - Dry eye [Unknown]
